FAERS Safety Report 5952492-4 (Version None)
Quarter: 2008Q4

REPORT INFORMATION
  Report Type: 
  Country: None (occurrence: None)
  Receive Date: 20081113
  Receipt Date: 20081104
  Transmission Date: 20090506
  Serious: Yes (Death, Life-Threatening, Hospitalization)
  Sender: FDA-Public Use
  Company Number: FR-PFIZER INC-2008090912

PATIENT
  Sex: Male
  Weight: 62 kg

DRUGS (4)
  1. SU-011,248 [Suspect]
     Indication: METASTATIC RENAL CELL CARCINOMA
     Route: 048
     Dates: start: 20080205, end: 20080226
  2. MOVICOL [Concomitant]
     Indication: CONSTIPATION
     Route: 048
     Dates: start: 20080218
  3. DOMPERIDONE [Concomitant]
     Indication: VOMITING
     Route: 048
     Dates: start: 20080218
  4. TRIMEBUTINE MALEATE [Concomitant]
     Indication: ABDOMINAL PAIN
     Route: 048
     Dates: start: 20080218

REACTIONS (1)
  - GENERAL PHYSICAL HEALTH DETERIORATION [None]
